FAERS Safety Report 21065394 (Version 2)
Quarter: 2022Q3

REPORT INFORMATION
  Report Type: Spontaneous
  Country: JP (occurrence: JP)
  Receive Date: 20220711
  Receipt Date: 20220920
  Transmission Date: 20221027
  Serious: Yes (Hospitalization, Other)
  Sender: FDA-Public Use
  Company Number: JP-OTSUKA-2022_029645

PATIENT
  Age: 75 Year
  Sex: Female

DRUGS (14)
  1. ABILIFY [Suspect]
     Active Substance: ARIPIPRAZOLE
     Indication: Depression
     Dosage: 6 MG/DAY
     Route: 048
     Dates: start: 20220429, end: 20220519
  2. OLANZAPINE [Suspect]
     Active Substance: OLANZAPINE
     Indication: Product used for unknown indication
     Dosage: 5 MG/DAY
     Route: 048
     Dates: start: 20220401, end: 20220519
  3. AMOXAPINE [Suspect]
     Active Substance: AMOXAPINE
     Indication: Product used for unknown indication
     Dosage: 150 MG/DAY
     Route: 048
     Dates: start: 20220429, end: 20220509
  4. AMOXAPINE [Suspect]
     Active Substance: AMOXAPINE
     Dosage: 25 MG/DAY
     Route: 048
     Dates: start: 20220221, end: 20220303
  5. AMOXAPINE [Suspect]
     Active Substance: AMOXAPINE
     Dosage: 50 MG/DAY
     Route: 048
     Dates: start: 20220304, end: 20220310
  6. AMOXAPINE [Suspect]
     Active Substance: AMOXAPINE
     Dosage: 75 MG/DAY
     Route: 048
     Dates: start: 20220311, end: 20220324
  7. AMOXAPINE [Suspect]
     Active Substance: AMOXAPINE
     Dosage: 100 MG/DAY
     Route: 048
     Dates: start: 20220325, end: 20220331
  8. AMOXAPINE [Suspect]
     Active Substance: AMOXAPINE
     Dosage: 150 MG/DAY
     Route: 048
     Dates: start: 20220401, end: 20220417
  9. AMOXAPINE [Suspect]
     Active Substance: AMOXAPINE
     Dosage: 200 MG/DAY
     Route: 048
     Dates: start: 20220418, end: 20220428
  10. AMOXAPINE [Suspect]
     Active Substance: AMOXAPINE
     Dosage: 100 MG/DAY
     Route: 048
     Dates: start: 20220510, end: 20220517
  11. AMOXAPINE [Suspect]
     Active Substance: AMOXAPINE
     Dosage: 50 MG/DAY
     Route: 048
     Dates: start: 20220518, end: 20220520
  12. LEVOTHYROXINE SODIUM [Concomitant]
     Active Substance: LEVOTHYROXINE SODIUM
     Indication: Product used for unknown indication
     Dosage: 75 MCG/DAY
     Route: 048
  13. ZOLPIDEM TARTRATE [Concomitant]
     Active Substance: ZOLPIDEM TARTRATE
     Indication: Product used for unknown indication
     Dosage: 5 MG/DAY
     Route: 048
  14. LORAZEPAM [Concomitant]
     Active Substance: LORAZEPAM
     Indication: Product used for unknown indication
     Dosage: 1 MG/DAY
     Route: 048
     Dates: start: 20220221

REACTIONS (2)
  - Pleurothotonus [Recovered/Resolved]
  - Dystonia [Recovering/Resolving]

NARRATIVE: CASE EVENT DATE: 20220502
